FAERS Safety Report 7215280-7 (Version None)
Quarter: 2011Q1

REPORT INFORMATION
  Report Type: 
  Country: None (occurrence: None)
  Receive Date: 20110107
  Receipt Date: 20110104
  Transmission Date: 20110831
  Serious: Yes (Death, Other)
  Sender: FDA-Public Use
  Company Number: PHHY2011US00819

PATIENT

DRUGS (1)
  1. CLOZARIL [Suspect]
     Dosage: 400 MG, UNK

REACTIONS (8)
  - ACCIDENTAL EXPOSURE [None]
  - CIRCULATORY COLLAPSE [None]
  - PULSE ABSENT [None]
  - DYSPNOEA [None]
  - CORONARY ARTERY OCCLUSION [None]
  - AGONAL RHYTHM [None]
  - CARDIAC ARREST [None]
  - SKIN DISCOLOURATION [None]
